FAERS Safety Report 16232304 (Version 3)
Quarter: 2019Q3

REPORT INFORMATION
  Report Type: Spontaneous
  Country: TR (occurrence: TR)
  Receive Date: 20190424
  Receipt Date: 20190918
  Transmission Date: 20191004
  Serious: Yes (Other)
  Sender: FDA-Public Use
  Company Number: PHHY2019TR092460

PATIENT
  Age: 25 Year
  Sex: Female

DRUGS (1)
  1. TRILEPTAL [Suspect]
     Active Substance: OXCARBAZEPINE
     Indication: EPILEPSY
     Dosage: 300 MG, BID
     Route: 048

REACTIONS (8)
  - Seizure [Unknown]
  - Hyperinsulinaemic hypoglycaemia [Unknown]
  - Frustration tolerance decreased [Unknown]
  - Anger [Unknown]
  - Screaming [Unknown]
  - Eating disorder [Unknown]
  - Restlessness [Unknown]
  - Abnormal behaviour [Unknown]
